FAERS Safety Report 11867084 (Version 1)
Quarter: 2015Q4

REPORT INFORMATION
  Report Type: Spontaneous
  Country: US (occurrence: US)
  Receive Date: 20151224
  Receipt Date: 20151224
  Transmission Date: 20160305
  Serious: No
  Sender: FDA-Public Use
  Company Number: US-GUERBET LLC-1045848

PATIENT
  Age: 62 Year
  Sex: Female

DRUGS (3)
  1. OXILAN [Suspect]
     Active Substance: IOXILAN
     Indication: ANGIOGRAM
     Route: 042
     Dates: start: 20090406, end: 20090406
  2. HEPARINAZED SALINE [Concomitant]
  3. CLONIDINE. [Concomitant]
     Active Substance: CLONIDINE

REACTIONS (2)
  - Eyelid oedema [Recovered/Resolved]
  - Eye pruritus [Recovered/Resolved]

NARRATIVE: CASE EVENT DATE: 20090406
